FAERS Safety Report 6560039-7 (Version None)
Quarter: 2010Q1

REPORT INFORMATION
  Report Type: 
  Country: None (occurrence: None)
  Receive Date: 20100129
  Receipt Date: 20090921
  Transmission Date: 20100710
  Serious: No
  Sender: FDA-Public Use
  Company Number: US-ABBOTT-09P-163-0598352-00

PATIENT
  Sex: Female
  Weight: 88.53 kg

DRUGS (3)
  1. HUMIRA [Suspect]
     Indication: PSORIASIS
     Dosage: DAY 1
     Dates: start: 20090902
  2. HUMIRA [Suspect]
     Dates: start: 20090909
  3. ATACAND HCT [Concomitant]
     Indication: BLOOD PRESSURE
     Dosage: 32/12.5MG

REACTIONS (2)
  - SKIN EXFOLIATION [None]
  - SKIN FISSURES [None]
